FAERS Safety Report 10603154 (Version 1)
Quarter: 2014Q4

REPORT INFORMATION
  Report Type: Spontaneous
  Country: US (occurrence: US)
  Receive Date: 20141124
  Receipt Date: 20141124
  Transmission Date: 20150529
  Serious: No
  Sender: FDA-Public Use
  Company Number: US-PFIZER INC-2014321499

PATIENT
  Sex: Female

DRUGS (1)
  1. LYRICA [Suspect]
     Active Substance: PREGABALIN
     Dosage: UNK
     Dates: start: 201404, end: 201410

REACTIONS (3)
  - Dysarthria [Unknown]
  - Hypokinesia [Unknown]
  - Drug screen positive [Unknown]

NARRATIVE: CASE EVENT DATE: 20141113
